FAERS Safety Report 18107875 (Version 2)
Quarter: 2020Q3

REPORT INFORMATION
  Report Type: Spontaneous
  Country: US (occurrence: US)
  Receive Date: 20200803
  Receipt Date: 20200807
  Transmission Date: 20201103
  Serious: No
  Sender: FDA-Public Use
  Company Number: US-BAUSCH-BL-2020-020954

PATIENT
  Age: 65 Year
  Sex: Female
  Weight: 58.57 kg

DRUGS (6)
  1. METHOTREXATE. [Concomitant]
     Active Substance: METHOTREXATE
     Indication: PRODUCT USED FOR UNKNOWN INDICATION
  2. MIRALAX [Concomitant]
     Active Substance: POLYETHYLENE GLYCOL 3350
     Indication: PRODUCT USED FOR UNKNOWN INDICATION
  3. TRULANCE [Suspect]
     Active Substance: PLECANATIDE
     Dosage: DOSE:1/8 TABLET, EVERY 1 TO 2 DAYS
     Route: 048
     Dates: start: 2020, end: 2020
  4. TRULANCE [Suspect]
     Active Substance: PLECANATIDE
     Indication: CONSTIPATION
     Dosage: STARTED ABOUT A MONTH AND A HALF AGO, 1 FULL TABLET FOR 2 DAYS
     Route: 048
     Dates: start: 2020, end: 2020
  5. TRULANCE [Suspect]
     Active Substance: PLECANATIDE
     Dosage: DOSE:1/2 TABLET
     Route: 048
     Dates: start: 2020, end: 2020
  6. TRULANCE [Suspect]
     Active Substance: PLECANATIDE
     Dosage: DOSE:1/4 TABLET
     Route: 048
     Dates: start: 2020, end: 2020

REACTIONS (7)
  - Ill-defined disorder [Not Recovered/Not Resolved]
  - Wrong technique in product usage process [Unknown]
  - Therapy interrupted [Unknown]
  - Diarrhoea [Unknown]
  - Drug intolerance [Unknown]
  - Anal incontinence [Unknown]
  - Abdominal distension [Not Recovered/Not Resolved]

NARRATIVE: CASE EVENT DATE: 2020
